FAERS Safety Report 7788079-0 (Version None)
Quarter: 2011Q3

REPORT INFORMATION
  Report Type: 
  Country: None (occurrence: None)
  Receive Date: 20110930
  Receipt Date: 20101029
  Transmission Date: 20111222
  Serious: Yes (Hospitalization)
  Sender: FDA-Public Use
  Company Number: US-BAYER-201021945NA

PATIENT
  Age: 33 Year
  Sex: Female
  Weight: 65.76 kg

DRUGS (9)
  1. YASMIN [Suspect]
     Indication: CONTRACEPTION
     Route: 048
     Dates: start: 20050201, end: 20051004
  2. YASMIN [Suspect]
     Indication: ACNE
     Dosage: UNK
     Dates: start: 20050301, end: 20051001
  3. MOTRIN [Concomitant]
  4. LEXAPRO [Concomitant]
     Indication: MENSTRUAL DISORDER
     Dosage: 10MG/DAY
     Dates: start: 20020101
  5. LEXAPRO [Concomitant]
     Indication: DEPRESSION
  6. IBUPROFEN (ADVIL) [Concomitant]
  7. SOMA [Concomitant]
  8. LEXAPRO [Concomitant]
     Indication: NEUROTRANSMITTER LEVEL ALTERED
  9. YASMIN [Suspect]
     Indication: PREMENSTRUAL SYNDROME

REACTIONS (5)
  - BACK PAIN [None]
  - CHEST PAIN [None]
  - ANXIETY [None]
  - PULMONARY INFARCTION [None]
  - PULMONARY EMBOLISM [None]
